FAERS Safety Report 20429365 (Version 1)
Quarter: 2022Q1

REPORT INFORMATION
  Report Type: Spontaneous
  Country: AT (occurrence: AT)
  Receive Date: 20220204
  Receipt Date: 20220204
  Transmission Date: 20220424
  Serious: Yes (Other)
  Sender: FDA-Public Use
  Company Number: AT-GLAXOSMITHKLINE-AT2022EME019453

PATIENT
  Age: 57 Year

DRUGS (1)
  1. BLENREP [Suspect]
     Active Substance: BELANTAMAB MAFODOTIN-BLMF
     Indication: Product used for unknown indication
     Dosage: UNK

REACTIONS (3)
  - Plasma cell myeloma [Unknown]
  - Therapy cessation [Unknown]
  - Loss of therapeutic response [Unknown]
